FAERS Safety Report 5442525-6 (Version None)
Quarter: 2007Q3

REPORT INFORMATION
  Report Type: 
  Country: None (occurrence: None)
  Receive Date: 20070830
  Receipt Date: 20070816
  Transmission Date: 20080115
  Serious: Yes (Hospitalization, Other)
  Sender: FDA-Public Use
  Company Number: SPI200700492

PATIENT
  Age: 49 Year
  Sex: Female
  Weight: 82.5 kg

DRUGS (4)
  1. AMITIZA [Suspect]
     Indication: CONSTIPATION
     Dosage: 24 MCG, ORAL
     Route: 048
     Dates: start: 20070614, end: 20070617
  2. NEXIUM (ESOMEPRAZOLE MAGNESIUM ACETATE) [Concomitant]
  3. FEMHRT [Concomitant]
  4. ADVAIR DISKUS 100/50 [Concomitant]

REACTIONS (6)
  - ASTHMA [None]
  - CHEST PAIN [None]
  - CONDITION AGGRAVATED [None]
  - DRUG HYPERSENSITIVITY [None]
  - ELECTROCARDIOGRAM ABNORMAL [None]
  - HEADACHE [None]
